FAERS Safety Report 5536425-0 (Version None)
Quarter: 2007Q4

REPORT INFORMATION
  Report Type: 
  Country: None (occurrence: None)
  Receive Date: 20071204
  Receipt Date: 20071120
  Transmission Date: 20080405
  Serious: Yes (Hospitalization)
  Sender: FDA-Public Use
  Company Number: DSA_30946_2007

PATIENT
  Age: 65 Year
  Sex: Female

DRUGS (2)
  1. MONO-TILDIEM (MONO-TILDIEM - DILTIAZEM HYDROCHLORIDE) (NOT SPECIFIED) [Suspect]
     Indication: HYPERTENSION
     Dosage: (200 MG QD ORAL)
     Route: 048
     Dates: start: 20061101, end: 20071101
  2. DEPAKINE CHRONO [Concomitant]

REACTIONS (2)
  - CHEST DISCOMFORT [None]
  - SINUS BRADYCARDIA [None]
